FAERS Safety Report 5042356-5 (Version None)
Quarter: 2006Q2

REPORT INFORMATION
  Report Type: 
  Country: None (occurrence: None)
  Receive Date: 20060627
  Receipt Date: 20060613
  Transmission Date: 20061013
  Serious: Yes (Hospitalization, Other)
  Sender: FDA-Public Use
  Company Number: 105292

PATIENT
  Age: 11 Year
  Sex: Male
  Weight: 26 kg

DRUGS (3)
  1. DAIVOBET [Suspect]
     Indication: PSORIASIS
     Dosage: 1 APPLICATION
     Route: 061
     Dates: start: 20030120, end: 20060201
  2. NERISALIC (NERISALIC) [Concomitant]
  3. SAUGELLA [Concomitant]

REACTIONS (8)
  - ARTHRALGIA [None]
  - DRUG ADMINISTRATION ERROR [None]
  - OVERDOSE [None]
  - PAIN OF SKIN [None]
  - PIGMENTATION DISORDER [None]
  - PUSTULAR PSORIASIS [None]
  - PYREXIA [None]
  - REBOUND EFFECT [None]
